FAERS Safety Report 6096494-9 (Version None)
Quarter: 2009Q1

REPORT INFORMATION
  Report Type: 
  Country: None (occurrence: None)
  Receive Date: 20090227
  Receipt Date: 20090216
  Transmission Date: 20090719
  Serious: Yes (Hospitalization, Other)
  Sender: FDA-Public Use
  Company Number: US-ELI_LILLY_AND_COMPANY-US200811001508

PATIENT
  Sex: Male

DRUGS (4)
  1. FORTEO [Suspect]
     Indication: HYPOPHOSPHATASIA
     Dosage: 20 UG, DAILY (1/D)
     Dates: start: 20080808
  2. COREG [Concomitant]
  3. CARDURA [Concomitant]
  4. HYDROCHLOROTHIAZIDE [Concomitant]

REACTIONS (6)
  - BLOOD ALKALINE PHOSPHATASE INCREASED [None]
  - BLOOD CALCIUM INCREASED [None]
  - BONE DISORDER [None]
  - FEMORAL NECK FRACTURE [None]
  - FEMUR FRACTURE [None]
  - RIB FRACTURE [None]
